FAERS Safety Report 8477732-1 (Version None)
Quarter: 2012Q2

REPORT INFORMATION
  Report Type: 
  Country: None (occurrence: None)
  Receive Date: 20120629
  Receipt Date: 20120621
  Transmission Date: 20120825
  Serious: Yes (Hospitalization, Other)
  Sender: FDA-Public Use
  Company Number: US-BAYER-2012-018925

PATIENT
  Age: 30 Year
  Sex: Female
  Weight: 72.562 kg

DRUGS (4)
  1. YASMIN [Suspect]
     Indication: CONTRACEPTION
     Dosage: UNK
     Dates: start: 20030101, end: 20040101
  2. YASMIN [Suspect]
     Dosage: UNK
     Dates: start: 20060101, end: 20070101
  3. OMEPRAZOLE [Concomitant]
     Dosage: UNK
     Dates: start: 20080101
  4. DROSPIRENONE AND ETHINYL ESTRADIOL [Suspect]
     Indication: CONTRACEPTION
     Dosage: UNK
     Dates: start: 20070101, end: 20080101

REACTIONS (5)
  - BILIARY DYSKINESIA [None]
  - PAIN [None]
  - CHOLECYSTECTOMY [None]
  - INJURY [None]
  - ABDOMINAL PAIN [None]
